FAERS Safety Report 6336914-5 (Version None)
Quarter: 2009Q3

REPORT INFORMATION
  Report Type: 
  Country: None (occurrence: None)
  Receive Date: 20090901
  Receipt Date: 20090824
  Transmission Date: 20100115
  Serious: Yes (Hospitalization, Other)
  Sender: FDA-Public Use
  Company Number: PHHY2009BR35734

PATIENT

DRUGS (1)
  1. EXFORGE [Suspect]
     Dosage: 1 TABLET (160/5 MG)DAILY
     Route: 048
     Dates: start: 20040101

REACTIONS (3)
  - DIABETES MELLITUS [None]
  - PROTEINURIA [None]
  - VASCULAR GRAFT [None]
